FAERS Safety Report 8908280 (Version 1)
Quarter: 2012Q4

REPORT INFORMATION
  Report Type: 
  Country: US (occurrence: US)
  Receive Date: 20121114
  Receipt Date: 20121114
  Transmission Date: 20130627
  Serious: Yes (Other)
  Sender: FDA-Public Use
  Company Number: CHPA2012US023215

PATIENT
  Age: 64 Year
  Sex: Male

DRUGS (1)
  1. THERAPEUTIC MINERAL ICE [Suspect]
     Indication: SINUS DISORDER
     Dosage: Unk, as needed
     Route: 061
     Dates: start: 1992

REACTIONS (5)
  - Chronic obstructive pulmonary disease [Not Recovered/Not Resolved]
  - Burning sensation [Recovered/Resolved]
  - Off label use [Unknown]
  - Therapeutic response unexpected [Unknown]
  - Expired drug administered [Unknown]
